FAERS Safety Report 14918374 (Version 2)
Quarter: 2018Q2

REPORT INFORMATION
  Report Type: Spontaneous
  Country: JP (occurrence: JP)
  Receive Date: 20180521
  Receipt Date: 20180611
  Transmission Date: 20180711
  Serious: Yes (Other)
  Sender: FDA-Public Use
  Company Number: PHJP2018JP009532

PATIENT
  Sex: Female

DRUGS (1)
  1. VOTRIENT [Suspect]
     Active Substance: PAZOPANIB HYDROCHLORIDE
     Indication: RENAL CELL CARCINOMA
     Dosage: 800 MG, UNK
     Route: 048

REACTIONS (6)
  - Concomitant disease aggravated [Unknown]
  - Malignant neoplasm progression [Unknown]
  - Gastrointestinal haemorrhage [Recovered/Resolved]
  - Amylase increased [Recovered/Resolved]
  - Gastric ulcer [Unknown]
  - Metastases to lung [Unknown]

NARRATIVE: CASE EVENT DATE: 20180423
